FAERS Safety Report 8049044-1 (Version None)
Quarter: 2011Q4

REPORT INFORMATION
  Report Type: 
  Country: None (occurrence: None)
  Receive Date: 20111209
  Receipt Date: 20110915
  Transmission Date: 20120403
  Serious: No
  Sender: FDA-Public Use
  Company Number: 2011SP043679

PATIENT
  Sex: Female

DRUGS (3)
  1. PEG-INTRON [Suspect]
     Indication: HEPATITIS C
     Dosage: 150 MCG;QW;
     Dates: start: 20110805, end: 20110909
  2. RIBAVIRIN [Suspect]
     Indication: PRODUCT USED FOR UNKNOWN INDICATION
  3. VICTRELIS [Suspect]
     Indication: PRODUCT USED FOR UNKNOWN INDICATION

REACTIONS (3)
  - FATIGUE [None]
  - TONGUE ULCERATION [None]
  - STOMATITIS [None]
